FAERS Safety Report 5485861-X (Version None)
Quarter: 2007Q4

REPORT INFORMATION
  Report Type: 
  Country: None (occurrence: None)
  Receive Date: 20071015
  Receipt Date: 20071002
  Transmission Date: 20080405
  Serious: Yes (Hospitalization, Other)
  Sender: FDA-Public Use
  Company Number: US-ELI_LILLY_AND_COMPANY-US200708002363

PATIENT
  Sex: Female
  Weight: 107.3 kg

DRUGS (16)
  1. CYMBALTA [Suspect]
     Indication: MAJOR DEPRESSION
     Dosage: 30 MG, UNK
     Dates: start: 20060801
  2. GLUCOPHAGE [Concomitant]
  3. TRILEPTAL [Concomitant]
  4. VICODIN [Concomitant]
  5. FLEXERIL [Concomitant]
  6. SUBOXONE [Concomitant]
  7. SYNTHROID [Concomitant]
  8. PREDNISONE [Concomitant]
  9. LIPITOR [Concomitant]
  10. CELLCEPT [Concomitant]
  11. PROGRAF [Concomitant]
  12. PROTONIX [Concomitant]
  13. AVANDIA [Concomitant]
  14. HYDROCHLOROTHIAZIDE [Concomitant]
  15. LISINOPRIL [Concomitant]
  16. LEXAPRO [Concomitant]
     Dosage: 10 MG, DAILY (1/D)
     Dates: start: 20060101

REACTIONS (1)
  - MYASTHENIA GRAVIS CRISIS [None]
